FAERS Safety Report 10571401 (Version 2)
Quarter: 2016Q2

REPORT INFORMATION
  Report Type: Spontaneous
  Country: US (occurrence: US)
  Receive Date: 20141107
  Receipt Date: 20160620
  Transmission Date: 20160815
  Serious: Yes (Hospitalization, Disabling, Other)
  Sender: FDA-Public Use
  Company Number: US-009507513-1411USA000620

PATIENT
  Sex: Female

DRUGS (3)
  1. FOSAMAX [Suspect]
     Active Substance: ALENDRONATE SODIUM
     Indication: BONE DENSITY DECREASED
     Dosage: 70 MG, UNK
     Route: 048
     Dates: start: 20020726, end: 20091217
  2. CALCIUM (UNSPECIFIED) [Concomitant]
     Active Substance: CALCIUM
     Indication: PRODUCT USED FOR UNKNOWN INDICATION
     Dosage: 1200 MG, QD
     Route: 065
  3. FOSAMAX [Suspect]
     Active Substance: ALENDRONATE SODIUM
     Dosage: 70 MG, UNK
     Route: 048
     Dates: start: 20101229, end: 20120529

REACTIONS (11)
  - Anxiety [Not Recovered/Not Resolved]
  - Inflammatory bowel disease [Unknown]
  - Hypertension [Unknown]
  - Femoral neck fracture [Not Recovered/Not Resolved]
  - Depression [Not Recovered/Not Resolved]
  - Gastritis [Unknown]
  - Thyroid disorder [Unknown]
  - Systemic lupus erythematosus [Unknown]
  - Asthma [Unknown]
  - Foot fracture [Unknown]
  - Rheumatoid arthritis [Unknown]

NARRATIVE: CASE EVENT DATE: 2003
